FAERS Safety Report 21666906 (Version 1)
Quarter: 2022Q4

REPORT INFORMATION
  Report Type: Report from Study
  Country: US (occurrence: US)
  Receive Date: 20221201
  Receipt Date: 20221201
  Transmission Date: 20230113
  Serious: No
  Sender: FDA-Public Use
  Company Number: US-ABBVIE-4198343

PATIENT
  Age: 75 Year
  Sex: Female

DRUGS (1)
  1. HUMIRA [Suspect]
     Active Substance: ADALIMUMAB
     Indication: Rheumatoid arthritis
     Dosage: EVENT ONSET FOR DEVICE ISSUE SHOULD BE: 2022 ATLEAST.
     Route: 058
     Dates: start: 202205

REACTIONS (4)
  - Injection site reaction [Unknown]
  - Injection site discharge [Unknown]
  - Injection site injury [Unknown]
  - Device issue [Unknown]

NARRATIVE: CASE EVENT DATE: 20221101
